FAERS Safety Report 18775055 (Version 2)
Quarter: 2021Q1

REPORT INFORMATION
  Report Type: Report from Study
  Country: IT (occurrence: IT)
  Receive Date: 20210122
  Receipt Date: 20210211
  Transmission Date: 20210419
  Serious: Yes (Death)
  Sender: FDA-Public Use
  Company Number: IT-JNJFOC-20201254337

PATIENT

DRUGS (2)
  1. ABIRATERONE ACETATE. [Suspect]
     Active Substance: ABIRATERONE ACETATE
     Indication: CUSHING^S SYNDROME
     Route: 048
  2. MITOTANE [Suspect]
     Active Substance: MITOTANE
     Indication: CUSHING^S SYNDROME
     Route: 065

REACTIONS (1)
  - Intestinal obstruction [Fatal]
